FAERS Safety Report 5828296-X (Version None)
Quarter: 2008Q3

REPORT INFORMATION
  Report Type: 
  Country: None (occurrence: None)
  Receive Date: 20080725
  Receipt Date: 20080718
  Transmission Date: 20090109
  Serious: Yes (Life-Threatening)
  Sender: FDA-Public Use
  Company Number: 200813858

PATIENT
  Age: 58 Year
  Sex: Male

DRUGS (6)
  1. ALBUMINAR-5 [Suspect]
     Indication: HYPOALBUMINAEMIA
     Dosage: 250 ML ONCE IV
     Route: 042
     Dates: start: 20080710, end: 20080710
  2. ALBUMINAR-5 [Suspect]
     Indication: HYPOALBUMINAEMIA
     Dosage: 250 ML ONCE IV
     Route: 042
     Dates: start: 20080711, end: 20080711
  3. ALBUMINAR-5 [Suspect]
  4. ROCEPHIN [Concomitant]
  5. LANSOPRAZOLE [Concomitant]
  6. ORGARAN [Concomitant]

REACTIONS (1)
  - RASH [None]
